FAERS Safety Report 13671667 (Version 1)
Quarter: 2017Q2

REPORT INFORMATION
  Report Type: Spontaneous
  Country: US (occurrence: US)
  Receive Date: 20170620
  Receipt Date: 20170620
  Transmission Date: 20170830
  Serious: Yes (Hospitalization)
  Sender: FDA-Public Use
  Company Number: US-ROCHE-1017368

PATIENT
  Sex: Female

DRUGS (1)
  1. XELODA [Suspect]
     Active Substance: CAPECITABINE
     Indication: COLON CANCER METASTATIC
     Route: 065

REACTIONS (9)
  - Hypotension [Unknown]
  - Diarrhoea [Unknown]
  - Pyrexia [Unknown]
  - Neutropenia [Unknown]
  - Vomiting [Unknown]
  - Dehydration [Unknown]
  - Abdominal pain [Unknown]
  - Clostridium difficile colitis [Unknown]
  - Nausea [Unknown]
